FAERS Safety Report 5934356-5 (Version None)
Quarter: 2008Q4

REPORT INFORMATION
  Report Type: 
  Country: None (occurrence: None)
  Receive Date: 20081029
  Receipt Date: 20081022
  Transmission Date: 20090506
  Serious: Yes (Other)
  Sender: FDA-Public Use
  Company Number: PHBS2008GR06102

PATIENT
  Age: 31 Year
  Sex: Male

DRUGS (3)
  1. OXCARBAZEPINE [Suspect]
     Indication: SCHIZOPHRENIA
     Dosage: UP TO 1200 MG/DAY
  2. OXCARBAZEPINE [Suspect]
     Dosage: 600 MG/DAY
  3. AMISULPRIDE [Suspect]
     Dosage: 400 MG, BID

REACTIONS (17)
  - ALANINE AMINOTRANSFERASE INCREASED [None]
  - ASPARTATE AMINOTRANSFERASE INCREASED [None]
  - BLOOD CREATINE PHOSPHOKINASE INCREASED [None]
  - BLOOD LACTATE DEHYDROGENASE INCREASED [None]
  - CORNEAL REFLEX DECREASED [None]
  - DEPRESSED LEVEL OF CONSCIOUSNESS [None]
  - ELECTROENCEPHALOGRAM ABNORMAL [None]
  - HEART RATE IRREGULAR [None]
  - HYPERHIDROSIS [None]
  - HYPERTENSION [None]
  - HYPOKINESIA [None]
  - LEUKOCYTOSIS [None]
  - MASKED FACIES [None]
  - MUSCLE RIGIDITY [None]
  - NEUROLEPTIC MALIGNANT SYNDROME [None]
  - NEUTROPHIL PERCENTAGE INCREASED [None]
  - TREMOR [None]
